FAERS Safety Report 10824262 (Version 1)
Quarter: 2015Q1

REPORT INFORMATION
  Report Type: Report from Study
  Country: US (occurrence: US)
  Receive Date: 20150219
  Receipt Date: 20150219
  Transmission Date: 20150721
  Serious: No
  Sender: FDA-Public Use
  Company Number: US-ABBVIE-14K-163-1315260-00

PATIENT
  Sex: Female

DRUGS (1)
  1. HUMIRA [Suspect]
     Active Substance: ADALIMUMAB
     Indication: CROHN^S DISEASE
     Route: 065
     Dates: start: 20140723

REACTIONS (5)
  - Vomiting [Unknown]
  - Alopecia [Unknown]
  - Eczema [Unknown]
  - Gastrointestinal pain [Unknown]
  - Migraine [Unknown]

NARRATIVE: CASE EVENT DATE: 2014
